FAERS Safety Report 9510608 (Version 1)
Quarter: 2013Q3

REPORT INFORMATION
  Report Type: Report from Study
  Country: US (occurrence: US)
  Receive Date: 20130909
  Receipt Date: 20130909
  Transmission Date: 20140515
  Serious: Yes (Hospitalization)
  Sender: FDA-Public Use
  Company Number: US-WATSON-2013-15451

PATIENT
  Age: 78 Year
  Sex: Male

DRUGS (17)
  1. NORCO 5/325 (WATSON LABORATORIES) [Suspect]
     Indication: PRODUCT USED FOR UNKNOWN INDICATION
     Dosage: 5/325MG, 4X DAY (EVERY 6 HOURS)
     Route: 048
  2. SUNITINIB MALATE [Suspect]
     Indication: PRODUCT USED FOR UNKNOWN INDICATION
     Dosage: 37.5MG, 1XDAY
     Route: 048
     Dates: start: 20121130, end: 20121210
  3. DASATINIB [Suspect]
     Indication: PRODUCT USED FOR UNKNOWN INDICATION
     Dosage: 100MG, 1XDAY
     Route: 048
     Dates: start: 20120920, end: 20121031
  4. ABIRATERONE ACETATE [Suspect]
     Indication: PRODUCT USED FOR UNKNOWN INDICATION
     Dosage: 100MG, 1XDAY
     Route: 048
     Dates: start: 20120531, end: 20121210
  5. ADVIL /00044201/ [Suspect]
     Indication: PRODUCT USED FOR UNKNOWN INDICATION
     Dosage: UNK
     Route: 065
  6. HYDROCHLOROTHIAZIDE [Suspect]
     Indication: PRODUCT USED FOR UNKNOWN INDICATION
     Dosage: 25MG, 1XDAY
     Route: 048
  7. POTASSIUM CHLORIDE [Suspect]
     Indication: PRODUCT USED FOR UNKNOWN INDICATION
     Dosage: 20MEQ, UNK
     Route: 065
  8. ADVAIR [Suspect]
     Indication: PRODUCT USED FOR UNKNOWN INDICATION
     Dosage: 100/50MG, 2XDAY
     Route: 055
  9. ASPIRIN [Suspect]
     Indication: PRODUCT USED FOR UNKNOWN INDICATION
     Dosage: 325MG, 1XDAY
     Route: 048
  10. COMBIVENT [Suspect]
     Indication: PRODUCT USED FOR UNKNOWN INDICATION
     Dosage: 14.7G, AS NEEDED
     Route: 055
  11. COREG [Suspect]
     Indication: PRODUCT USED FOR UNKNOWN INDICATION
     Dosage: 6.25MG, UNK
     Route: 048
  12. ZOMETA [Suspect]
     Indication: PRODUCT USED FOR UNKNOWN INDICATION
     Dosage: 4MG, ANNUALLY
     Route: 042
  13. LUPRON [Suspect]
     Indication: PRODUCT USED FOR UNKNOWN INDICATION
     Dosage: 22.5MG, EVERY 3 MONTHS
     Route: 030
  14. CARAFATE [Suspect]
     Indication: PRODUCT USED FOR UNKNOWN INDICATION
     Dosage: 10ML, UNK
     Route: 065
  15. XOPENEX [Suspect]
     Indication: PRODUCT USED FOR UNKNOWN INDICATION
     Dosage: 2 DF, 1XDAY
     Route: 065
  16. HYDROMORPHONE [Suspect]
     Indication: PRODUCT USED FOR UNKNOWN INDICATION
     Dosage: 2MG, UNK
     Route: 065
  17. AUGMENTIN /02043401/ [Suspect]
     Indication: PRODUCT USED FOR UNKNOWN INDICATION
     Dosage: 875MG, 2X/DAY
     Route: 048

REACTIONS (1)
  - Stomatitis [Recovered/Resolved]
